FAERS Safety Report 5838436-4 (Version None)
Quarter: 2008Q3

REPORT INFORMATION
  Report Type: 
  Country: None (occurrence: None)
  Receive Date: 20080808
  Receipt Date: 20080730
  Transmission Date: 20090109
  Serious: Yes (Hospitalization)
  Sender: FDA-Public Use
  Company Number: NO-ASTRAZENECA-2008SE03388

PATIENT
  Age: 22 Year
  Sex: Male

DRUGS (4)
  1. SEROQUEL [Suspect]
     Indication: PSYCHOTIC DISORDER
     Dosage: 300 + 500 MG
     Route: 048
     Dates: start: 20080301
  2. ANTABUSE [Interacting]
     Indication: ALCOHOL ABUSE
     Route: 048
     Dates: start: 20080522, end: 20080616
  3. NOZINAN [Concomitant]
     Indication: ANXIETY
     Dosage: AS NEEDED;BUT USED REGULARLY VESPERE FOR SLEEP
     Route: 048
  4. ZOPICLONE [Concomitant]
     Indication: SLEEP DISORDER
     Dosage: VESPERE
     Route: 048

REACTIONS (2)
  - DRUG INTERACTION [None]
  - GRAND MAL CONVULSION [None]
